FAERS Safety Report 22994188 (Version 2)
Quarter: 2023Q4

REPORT INFORMATION
  Report Type: Spontaneous
  Country: UA (occurrence: UA)
  Receive Date: 20230927
  Receipt Date: 20231013
  Transmission Date: 20240109
  Serious: Yes (Other)
  Sender: FDA-Public Use
  Company Number: UA-BAYER-2023A136084

PATIENT
  Age: 80 Year
  Sex: Female

DRUGS (2)
  1. EYLEA [Suspect]
     Active Substance: AFLIBERCEPT
     Indication: Neovascular age-related macular degeneration
     Dosage: 1 DF, ONCE, SOLUTION FOR INJECTION, 40MG/ML
     Route: 031
     Dates: start: 20230918, end: 20230918
  2. EYLEA [Suspect]
     Active Substance: AFLIBERCEPT
     Indication: Vitreous haemorrhage

REACTIONS (3)
  - Vitritis [Unknown]
  - Visual impairment [Unknown]
  - Eye pain [Unknown]

NARRATIVE: CASE EVENT DATE: 20230101
